FAERS Safety Report 5222822-X (Version None)
Quarter: 2007Q1

REPORT INFORMATION
  Report Type: 
  Country: None (occurrence: None)
  Receive Date: 20070129
  Receipt Date: 20070122
  Transmission Date: 20070707
  Serious: No
  Sender: FDA-Public Use
  Company Number: J200605347

PATIENT
  Age: 22 Year
  Sex: Female

DRUGS (1)
  1. SAWACILLIN [Suspect]
     Dosage: 250MG THREE TIMES PER DAY
     Route: 048
     Dates: start: 20061129

REACTIONS (3)
  - ARTHRALGIA [None]
  - ASTHENIA [None]
  - PARAESTHESIA [None]
